FAERS Safety Report 9820491 (Version 16)
Quarter: 2016Q4

REPORT INFORMATION
  Report Type: Report from Study
  Country: US (occurrence: US)
  Receive Date: 20140116
  Receipt Date: 20161216
  Transmission Date: 20170207
  Serious: Yes (Hospitalization, Other)
  Sender: FDA-Public Use
  Company Number: US-SA-2013SA127406

PATIENT
  Age: 75 Year
  Sex: Female
  Weight: 148 kg

DRUGS (11)
  1. AUBAGIO [Suspect]
     Active Substance: TERIFLUNOMIDE
     Indication: MULTIPLE SCLEROSIS
     Route: 048
     Dates: start: 2009
  2. AUBAGIO [Suspect]
     Active Substance: TERIFLUNOMIDE
     Indication: MULTIPLE SCLEROSIS
     Route: 048
     Dates: start: 2016, end: 201610
  3. LEVOTHYROXINE. [Concomitant]
     Active Substance: LEVOTHYROXINE
  4. AUBAGIO [Suspect]
     Active Substance: TERIFLUNOMIDE
     Indication: MULTIPLE SCLEROSIS
     Route: 048
     Dates: start: 201608
  5. POTASSIUM CITRATE. [Concomitant]
     Active Substance: POTASSIUM CITRATE
     Indication: HYPERTENSION
  6. IMODIUM [Concomitant]
     Active Substance: LOPERAMIDE HYDROCHLORIDE
     Indication: HYPERTENSION
  7. AUBAGIO [Suspect]
     Active Substance: TERIFLUNOMIDE
     Indication: MULTIPLE SCLEROSIS
     Route: 048
     Dates: start: 20130723, end: 20160731
  8. ADVIL PM [Concomitant]
     Active Substance: DIPHENHYDRAMINE CITRATE\IBUPROFEN
     Indication: INSOMNIA
  9. VALIUM [Concomitant]
     Active Substance: DIAZEPAM
     Indication: NERVOUSNESS
  10. AUBAGIO [Suspect]
     Active Substance: TERIFLUNOMIDE
     Indication: MULTIPLE SCLEROSIS
     Route: 048
     Dates: start: 20161129, end: 20161206
  11. TRAZODONE [Concomitant]
     Active Substance: TRAZODONE HYDROCHLORIDE
     Indication: RESTLESS LEGS SYNDROME

REACTIONS (43)
  - Gait disturbance [Unknown]
  - Unevaluable event [Unknown]
  - Nasal congestion [Unknown]
  - Memory impairment [Unknown]
  - Fall [Recovered/Resolved]
  - Vitamin B12 decreased [Unknown]
  - Feeling abnormal [Recovered/Resolved]
  - Weight decreased [Not Recovered/Not Resolved]
  - Arthropathy [Unknown]
  - Alopecia [Recovered/Resolved]
  - Peripheral swelling [Unknown]
  - Dizziness [Not Recovered/Not Resolved]
  - Hypoaesthesia [Unknown]
  - Pain in extremity [Unknown]
  - Spinal deformity [Unknown]
  - Feeling hot [Unknown]
  - Crying [Recovered/Resolved]
  - Tremor [Unknown]
  - Anal incontinence [Recovered/Resolved]
  - Drug ineffective [Unknown]
  - Blood pressure increased [Unknown]
  - Pain in extremity [Unknown]
  - Fatigue [Unknown]
  - Initial insomnia [Unknown]
  - Poor quality sleep [Unknown]
  - Malaise [Not Recovered/Not Resolved]
  - Flushing [Unknown]
  - Depression [Unknown]
  - Nervousness [Unknown]
  - Back pain [Unknown]
  - Cognitive disorder [Unknown]
  - Erythema [Unknown]
  - Urinary incontinence [Unknown]
  - Malaise [Unknown]
  - Gait disturbance [Recovering/Resolving]
  - Transient ischaemic attack [Unknown]
  - Hair texture abnormal [Unknown]
  - Nocturia [Unknown]
  - Multiple sclerosis relapse [Not Recovered/Not Resolved]
  - Pneumonia [Not Recovered/Not Resolved]
  - Asthenia [Unknown]
  - Feeling abnormal [Unknown]
  - Dry mouth [Unknown]

NARRATIVE: CASE EVENT DATE: 2015
